FAERS Safety Report 9276353 (Version 1)
Quarter: 2013Q2

REPORT INFORMATION
  Report Type: Spontaneous
  Country: US (occurrence: US)
  Receive Date: 20130507
  Receipt Date: 20130507
  Transmission Date: 20140414
  Serious: Yes (Hospitalization)
  Sender: FDA-Public Use
  Company Number: US-GLAXOSMITHKLINE-A0864630A

PATIENT
  Sex: Male

DRUGS (2)
  1. LAMICTAL [Suspect]
     Indication: EPILEPSY
     Dosage: 400MG UNKNOWN
     Route: 065
     Dates: start: 2005
  2. KEPPRA [Concomitant]

REACTIONS (8)
  - Schizophrenia [Unknown]
  - Convulsion [Not Recovered/Not Resolved]
  - Urinary retention [Not Recovered/Not Resolved]
  - Thinking abnormal [Unknown]
  - Bladder catheterisation [Not Recovered/Not Resolved]
  - Constipation [Not Recovered/Not Resolved]
  - Disturbance in attention [Not Recovered/Not Resolved]
  - Mental disorder [Not Recovered/Not Resolved]
